FAERS Safety Report 4637944-1 (Version None)
Quarter: 2005Q2

REPORT INFORMATION
  Report Type: 
  Country: None (occurrence: None)
  Receive Date: 20050418
  Receipt Date: 20050405
  Transmission Date: 20051028
  Serious: Yes (Life-Threatening, Hospitalization)
  Sender: FDA-Public Use
  Company Number: DE-ROCHE-400848

PATIENT
  Age: 28 Year
  Sex: Male
  Weight: 64 kg

DRUGS (2)
  1. PEG-INTERFERON A-2A (RO 25-8310) [Suspect]
     Route: 058
     Dates: start: 20040713, end: 20041208
  2. BLINDED ADEFOVIR DIPOVIXIL [Suspect]
     Route: 048
     Dates: start: 20040713, end: 20041215

REACTIONS (5)
  - ASCITES [None]
  - HEPATITIS [None]
  - HEPATOTOXICITY [None]
  - LIVER DISORDER [None]
  - TUBERCULOSIS [None]
